FAERS Safety Report 14921226 (Version 1)
Quarter: 2018Q2

REPORT INFORMATION
  Report Type: Spontaneous
  Country: CZ (occurrence: CZ)
  Receive Date: 20180521
  Receipt Date: 20180521
  Transmission Date: 20180711
  Serious: Yes (Other)
  Sender: FDA-Public Use
  Company Number: CZ-ASTRAZENECA-2018SE64433

PATIENT
  Sex: Female

DRUGS (5)
  1. BETALOC [Suspect]
     Active Substance: METOPROLOL TARTRATE
     Dosage: 50.0MG UNKNOWN
     Route: 048
  2. RIVODARON [Suspect]
     Active Substance: AMIODARONE HYDROCHLORIDE
     Route: 065
  3. ORTANOL [Suspect]
     Active Substance: OMEPRAZOLE
     Route: 048
  4. BETALOC [Suspect]
     Active Substance: METOPROLOL TARTRATE
     Route: 048
  5. CORDARONE [Suspect]
     Active Substance: AMIODARONE HYDROCHLORIDE
     Route: 048

REACTIONS (8)
  - Lip swelling [Unknown]
  - Vision blurred [Not Recovered/Not Resolved]
  - Oral discomfort [Unknown]
  - Visual impairment [Not Recovered/Not Resolved]
  - Dry mouth [Unknown]
  - Dysgeusia [Unknown]
  - Oedema mouth [Unknown]
  - Decreased appetite [Unknown]
